FAERS Safety Report 11109371 (Version 1)
Quarter: 2015Q2

REPORT INFORMATION
  Report Type: Spontaneous
  Country: US (occurrence: US)
  Receive Date: 20150513
  Receipt Date: 20150513
  Transmission Date: 20150821
  Serious: No
  Sender: FDA-Public Use
  Company Number: US-BAYER-2015-193537

PATIENT
  Age: 77 Year
  Sex: Female
  Weight: 54.42 kg

DRUGS (2)
  1. MIRALAX [Suspect]
     Active Substance: POLYETHYLENE GLYCOL 3350
     Indication: CONSTIPATION
     Dosage: 1 DOSE, PRN
     Route: 048
  2. MIRALAX [Suspect]
     Active Substance: POLYETHYLENE GLYCOL 3350
     Indication: COLONOSCOPY
     Dosage: 8.3 OZ
     Route: 048
     Dates: start: 20150423

REACTIONS (2)
  - Extra dose administered [None]
  - Medication error [None]

NARRATIVE: CASE EVENT DATE: 20150423
